FAERS Safety Report 23125018 (Version 1)
Quarter: 2023Q4

REPORT INFORMATION
  Report Type: Spontaneous
  Country: US (occurrence: US)
  Receive Date: 20231030
  Receipt Date: 20231030
  Transmission Date: 20240110
  Serious: No
  Sender: FDA-Public Use
  Company Number: US-EPIHEALTH-2023-US-005484

PATIENT
  Age: 27 Year
  Sex: Female
  Weight: 63.5 kg

DRUGS (1)
  1. RHOFADE [Suspect]
     Active Substance: OXYMETAZOLINE HYDROCHLORIDE
     Indication: Rosacea
     Dosage: APPLIED TO ENTIRE FACE ONE TIME APPROXIMATELY EVERY 3 DAYS
     Route: 061
     Dates: start: 20221105, end: 20221205

REACTIONS (5)
  - Pustule [Not Recovered/Not Resolved]
  - Skin discolouration [Not Recovered/Not Resolved]
  - Flushing [Not Recovered/Not Resolved]
  - Capillary fragility [Not Recovered/Not Resolved]
  - Erythema [Not Recovered/Not Resolved]

NARRATIVE: CASE EVENT DATE: 20221110
